FAERS Safety Report 10418390 (Version 2)
Quarter: 2014Q3

REPORT INFORMATION
  Report Type: Spontaneous
  Country: US (occurrence: US)
  Receive Date: 20140829
  Receipt Date: 20140829
  Transmission Date: 20150326
  Serious: No
  Sender: FDA-Public Use
  Company Number: US-ELI_LILLY_AND_COMPANY-US201406000959

PATIENT
  Sex: Female
  Weight: 123.81 kg

DRUGS (3)
  1. HUMALOG [Suspect]
     Active Substance: INSULIN LISPRO
     Dosage: 4 U, PRN
     Dates: start: 20140512
  2. LEVEMIR [Concomitant]
     Active Substance: INSULIN DETEMIR
  3. HUMALOG [Suspect]
     Active Substance: INSULIN LISPRO
     Indication: TYPE 2 DIABETES MELLITUS
     Dosage: 10 U, TID
     Dates: start: 20140512, end: 20140613

REACTIONS (7)
  - Mental impairment [Not Recovered/Not Resolved]
  - Peripheral swelling [Not Recovered/Not Resolved]
  - Crying [Unknown]
  - Hypersomnia [Not Recovered/Not Resolved]
  - Stress [Not Recovered/Not Resolved]
  - Obesity [Not Recovered/Not Resolved]
  - Blood glucose increased [Not Recovered/Not Resolved]
